FAERS Safety Report 24350208 (Version 1)
Quarter: 2024Q3

REPORT INFORMATION
  Report Type: Spontaneous
  Country: IT (occurrence: IT)
  Receive Date: 20240923
  Receipt Date: 20240923
  Transmission Date: 20241017
  Serious: No
  Sender: ROCHE
  Company Number: None

PATIENT
  Age: 51 Year
  Sex: Female
  Weight: 58.0 kg

DRUGS (2)
  1. TRASTUZUMAB [Suspect]
     Active Substance: TRASTUZUMAB
     Indication: Breast cancer metastatic
     Dosage: START OF THERAPY 06/12/2022, THERAPY PRACTICED WITH SUBCUTANEOUS PHESGO - FROM 07/12/2023 CONTINUED
     Route: 042
     Dates: start: 20231228, end: 20231228
  2. PERTUZUMAB [Suspect]
     Active Substance: PERTUZUMAB
     Indication: Breast cancer metastatic
     Dosage: START OF THERAPY 06/12/2022, THERAPY PRACTICED WITH SUBCUTANEOUS PHESGO - FROM 07/12/2023 CONTINUED
     Route: 065
     Dates: start: 20231228, end: 20231228

REACTIONS (2)
  - Muscle spasms [Recovering/Resolving]
  - Paraesthesia [Recovering/Resolving]

NARRATIVE: CASE EVENT DATE: 20240101
